FAERS Safety Report 13073468 (Version 2)
Quarter: 2017Q1

REPORT INFORMATION
  Report Type: Spontaneous
  Country: IT (occurrence: IT)
  Receive Date: 20161229
  Receipt Date: 20170110
  Transmission Date: 20170428
  Serious: Yes (Hospitalization)
  Sender: FDA-Public Use
  Company Number: IT-SA-2016SA234904

PATIENT
  Age: 81 Year
  Sex: Male

DRUGS (13)
  1. LANSOPRAZOLE. [Concomitant]
     Active Substance: LANSOPRAZOLE
     Dosage: MYLAN: STRENGTH: 15 MG
     Route: 048
  2. LEVOXACIN [Concomitant]
     Active Substance: LEVOFLOXACIN
     Dosage: STRENTH: 500 MG
     Route: 048
  3. CARDIOASPIRIN [Concomitant]
     Active Substance: ASPIRIN
     Route: 048
  4. SOLOSA [Suspect]
     Active Substance: GLIMEPIRIDE
     Indication: DIABETES MELLITUS
     Route: 065
  5. CARVEDILOL. [Concomitant]
     Active Substance: CARVEDILOL
     Dosage: STRENGTH: 6.25 MG
     Route: 048
  6. METFORMIN [Suspect]
     Active Substance: METFORMIN HYDROCHLORIDE
     Indication: DIABETES MELLITUS
     Route: 048
     Dates: start: 20120229, end: 20130902
  7. ONCO-CARBIDE [Concomitant]
     Active Substance: HYDROXYUREA
     Dosage: STRENTH: 500 MG HARD CAPSULE
     Route: 048
  8. TRINIPLAS [Concomitant]
     Active Substance: NITROGLYCERIN
     Dosage: 5MG/DIE TRANSDERMAL PATCH
     Route: 062
  9. KANRENOL [Concomitant]
     Active Substance: CANRENOATE POTASSIUM
     Dosage: STRENGTH: 100 MG
     Route: 048
  10. LASIX [Concomitant]
     Active Substance: FUROSEMIDE
     Dosage: STRENGTH: 25 MG
     Route: 048
  11. SOLOSA [Suspect]
     Active Substance: GLIMEPIRIDE
     Indication: DIABETES MELLITUS
     Dosage: DOSE:.5 UNIT(S)
     Route: 048
     Dates: start: 20120402, end: 20130902
  12. SIVASTIN [Concomitant]
     Active Substance: SIMVASTATIN
     Route: 048
  13. METFORMIN [Suspect]
     Active Substance: METFORMIN HYDROCHLORIDE
     Indication: DIABETES MELLITUS
     Route: 065

REACTIONS (3)
  - Hemiparesis [Recovered/Resolved]
  - Hypoglycaemia [Recovered/Resolved]
  - Dysarthria [Recovered/Resolved]

NARRATIVE: CASE EVENT DATE: 20130901
